FAERS Safety Report 24929418 (Version 1)
Quarter: 2025Q1

REPORT INFORMATION
  Report Type: Spontaneous
  Country: US (occurrence: US)
  Receive Date: 20250205
  Receipt Date: 20250205
  Transmission Date: 20250409
  Serious: Yes (Hospitalization, Other)
  Sender: NOVO NORDISK
  Company Number: US-NOVOPROD-1334464

PATIENT
  Sex: Male

DRUGS (3)
  1. LEVEMIR [Suspect]
     Active Substance: INSULIN DETEMIR
     Indication: Type 2 diabetes mellitus
     Dosage: 31 IU, QD
     Route: 058
     Dates: start: 2022
  2. OZEMPIC [Suspect]
     Active Substance: SEMAGLUTIDE
     Indication: Type 2 diabetes mellitus
     Dosage: 2 MG, QW
     Route: 058
     Dates: start: 2019
  3. TRESIBA [Suspect]
     Active Substance: INSULIN DEGLUDEC
     Indication: Type 2 diabetes mellitus
     Dosage: 31 IU, QD
     Route: 058
     Dates: start: 2023

REACTIONS (7)
  - Prostatic disorder [Recovered/Resolved]
  - Urethral stenosis [Recovered/Resolved]
  - Road traffic accident [Unknown]
  - Neck injury [Recovered/Resolved]
  - Intervertebral disc injury [Recovered/Resolved]
  - Dacryostenosis acquired [Unknown]
  - Fat tissue increased [Unknown]
